FAERS Safety Report 9326064 (Version 9)
Quarter: 2017Q3

REPORT INFORMATION
  Report Type: Report from Study
  Country: DE (occurrence: DE)
  Receive Date: 20130604
  Receipt Date: 20170814
  Transmission Date: 20171128
  Serious: Yes (Life-Threatening, Hospitalization)
  Sender: FDA-Public Use
  Company Number: DE-ROCHE-1232265

PATIENT
  Age: 72 Year
  Sex: Male
  Weight: 88 kg

DRUGS (14)
  1. CAPTOPRIL. [Concomitant]
     Active Substance: CAPTOPRIL
     Indication: HYPERTENSION
     Route: 048
     Dates: start: 20020101
  2. BELOC-ZOK MITE [Concomitant]
     Active Substance: METOPROLOL SUCCINATE
     Route: 065
     Dates: start: 20130427
  3. LOCOL (GERMANY) [Concomitant]
     Route: 048
     Dates: start: 20130430
  4. MOTILIUM [Concomitant]
     Active Substance: DOMPERIDONE
     Route: 048
     Dates: start: 20130430, end: 20130515
  5. BIFITERAL [Concomitant]
     Active Substance: LACTULOSE
     Route: 048
     Dates: start: 20130430
  6. PASPERTIN (METOCLOPRAMIDE HYDROCHLORIDE) [Concomitant]
     Dosage: 3 X DAILY.
     Route: 042
     Dates: start: 20130430, end: 20130515
  7. CARBOPLATIN. [Suspect]
     Active Substance: CARBOPLATIN
     Indication: NON-SMALL CELL LUNG CANCER
     Dosage: AUC 5
     Route: 042
     Dates: start: 20130402, end: 20130402
  8. MERONEM [Concomitant]
     Active Substance: MEROPENEM
     Route: 065
     Dates: start: 20130422, end: 20130507
  9. ACC [Concomitant]
     Active Substance: ACETYLCYSTEINE
     Route: 048
     Dates: start: 20130430
  10. DIGOXIN-SPECIFIC ANTIBODY FRAGMENTS [Concomitant]
     Active Substance: DIGOXIN
  11. BEVACIZUMAB. [Suspect]
     Active Substance: BEVACIZUMAB
     Indication: NON-SMALL CELL LUNG CANCER
     Route: 042
     Dates: start: 20130402, end: 20130402
  12. SIMVASTATIN. [Concomitant]
     Active Substance: SIMVASTATIN
     Indication: HYPERLIPIDAEMIA
     Route: 048
     Dates: start: 20020101
  13. MUCOSOLVAN [Concomitant]
     Active Substance: AMBROXOL HYDROCHLORIDE
     Route: 042
     Dates: start: 20130430, end: 20130515
  14. PEMETREXED DISODIUM [Suspect]
     Active Substance: PEMETREXED DISODIUM
     Indication: NON-SMALL CELL LUNG CANCER
     Route: 042
     Dates: start: 20130402, end: 20130402

REACTIONS (7)
  - Infection [Recovered/Resolved]
  - Pneumonia [Recovered/Resolved with Sequelae]
  - Anxiety [Unknown]
  - General physical health deterioration [Recovered/Resolved with Sequelae]
  - Hypertension [Unknown]
  - Tumour necrosis [Recovered/Resolved with Sequelae]
  - Haemothorax [Recovered/Resolved]

NARRATIVE: CASE EVENT DATE: 20130423
